FAERS Safety Report 18842082 (Version 1)
Quarter: 2021Q1

REPORT INFORMATION
  Report Type: Spontaneous
  Country: CN (occurrence: CN)
  Receive Date: 20210203
  Receipt Date: 20210203
  Transmission Date: 20210419
  Serious: Yes (Life-Threatening)
  Sender: FDA-Public Use
  Company Number: CN-ASTRAZENECA-2021A025303

PATIENT
  Age: 4383 Day
  Sex: Female
  Weight: 35 kg

DRUGS (2)
  1. SALBUTAMOL SULFATE [Suspect]
     Active Substance: ALBUTEROL SULFATE
     Route: 055
     Dates: start: 20210117, end: 20210117
  2. BUDESONIDE. [Suspect]
     Active Substance: BUDESONIDE
     Indication: BRONCHITIS
     Route: 055
     Dates: start: 20210117, end: 20210117

REACTIONS (3)
  - Tremor [Recovering/Resolving]
  - Asphyxia [Recovering/Resolving]
  - Chest discomfort [Recovering/Resolving]

NARRATIVE: CASE EVENT DATE: 20210117
